FAERS Safety Report 9060374 (Version 4)
Quarter: 2014Q4

REPORT INFORMATION
  Report Type: Spontaneous
  Country: JP (occurrence: JP)
  Receive Date: 20130212
  Receipt Date: 20141201
  Transmission Date: 20150529
  Serious: Yes (Hospitalization, Other)
  Sender: FDA-Public Use
  Company Number: JP-ASTRAZENECA-2013SE08043

PATIENT
  Age: 9 Month
  Sex: Male
  Weight: 9.1 kg

DRUGS (4)
  1. SYNAGIS [Suspect]
     Active Substance: PALIVIZUMAB
     Indication: INFECTION PROPHYLAXIS
     Dosage: 115 MG, STRENGTH: 50 MG, 100 MG
     Route: 030
     Dates: start: 20121206, end: 20121216
  2. SYNAGIS [Suspect]
     Active Substance: PALIVIZUMAB
     Indication: INFECTION PROPHYLAXIS
     Dosage: 115 MG, STRENGTH: 50 MG, 100 MG
     Route: 030
     Dates: start: 20121108, end: 20121108
  3. SYNAGIS [Suspect]
     Active Substance: PALIVIZUMAB
     Indication: INFECTION PROPHYLAXIS
     Dosage: 115 MG, STRENGTH: 50 MG, 100 MG
     Route: 030
     Dates: start: 20130104
  4. SYNAGIS [Suspect]
     Active Substance: PALIVIZUMAB
     Indication: INFECTION PROPHYLAXIS
     Dosage: 115 MG, 1.0 ML FROM LEFT, 0.3 ML FROM RIGHT, STRENGTH: 50 MG, 100 MG
     Route: 030
     Dates: start: 20121018, end: 20121018

REACTIONS (7)
  - Beta haemolytic streptococcal infection [Recovering/Resolving]
  - Erythema [Recovering/Resolving]
  - Purulent discharge [Recovering/Resolving]
  - Injection site induration [Recovering/Resolving]
  - Injection site swelling [Recovering/Resolving]
  - Injection site erythema [Recovering/Resolving]
  - Abscess [Recovering/Resolving]

NARRATIVE: CASE EVENT DATE: 201301
